FAERS Safety Report 11769021 (Version 1)
Quarter: 2015Q4

REPORT INFORMATION
  Report Type: Spontaneous
  Country: US (occurrence: US)
  Receive Date: 20151123
  Receipt Date: 20151123
  Transmission Date: 20160304
  Serious: No
  Sender: FDA-Public Use
  Company Number: US-JNJFOC-20151016179

PATIENT
  Age: 68 Year
  Sex: Male
  Weight: 79.38 kg

DRUGS (2)
  1. ZYRTEC [Suspect]
     Active Substance: CETIRIZINE HYDROCHLORIDE
     Route: 048
  2. ZYRTEC [Suspect]
     Active Substance: CETIRIZINE HYDROCHLORIDE
     Indication: MULTIPLE ALLERGIES
     Dosage: AT NIGHT
     Route: 048
     Dates: start: 20151013, end: 20151018

REACTIONS (6)
  - Product packaging issue [Unknown]
  - Urine output [Recovering/Resolving]
  - Dysuria [Recovering/Resolving]
  - Wrong patient received medication [Recovering/Resolving]
  - Urinary hesitation [Recovering/Resolving]
  - Product quality issue [Unknown]

NARRATIVE: CASE EVENT DATE: 20151013
